FAERS Safety Report 12078504 (Version 2)
Quarter: 2016Q1

REPORT INFORMATION
  Report Type: Spontaneous
  Country: DE (occurrence: DE)
  Receive Date: 20160216
  Receipt Date: 20160324
  Transmission Date: 20160526
  Serious: Yes (Hospitalization)
  Sender: FDA-Public Use
  Company Number: DE-ROCHE-1708855

PATIENT
  Age: 78 Year
  Sex: Female
  Weight: 59 kg

DRUGS (16)
  1. GAZYVARO [Suspect]
     Active Substance: OBINUTUZUMAB
     Dosage: DAY 2 OF THE CYCLE
     Route: 042
     Dates: start: 20151111
  2. PARACETAMOL [Concomitant]
     Active Substance: ACETAMINOPHEN
     Indication: PREMEDICATION
     Dosage: ON DAYS 1 AND 2, 8 15 OF THE CYCLE
     Route: 048
     Dates: start: 20151110
  3. ALLOPURINOL. [Concomitant]
     Active Substance: ALLOPURINOL
     Route: 048
  4. MCP [Concomitant]
     Active Substance: METOCLOPRAMIDE HYDROCHLORIDE
     Indication: NAUSEA
     Dosage: UP TO 4 TABLETS DAILY
     Route: 065
  5. BICANORM [Concomitant]
     Active Substance: SODIUM BICARBONATE
     Route: 065
  6. GAZYVARO [Suspect]
     Active Substance: OBINUTUZUMAB
     Dosage: DAY 8 OF THE CYCLE
     Route: 042
     Dates: start: 20151118
  7. CHLORAMBUCIL [Suspect]
     Active Substance: CHLORAMBUCIL
     Dosage: ON DAY 2 OF THE CYCLE
     Route: 048
  8. PREDNISOLONE. [Concomitant]
     Active Substance: PREDNISOLONE
     Indication: PREMEDICATION
     Dosage: ON DAYS 1 AND 2, 8 AND 15 OF THE CYCLE
     Route: 040
     Dates: start: 20151110
  9. GAZYVARO [Suspect]
     Active Substance: OBINUTUZUMAB
     Indication: CHRONIC LYMPHOCYTIC LEUKAEMIA
     Dosage: DAY 1 OF THE CYCLE
     Route: 042
     Dates: start: 20151110
  10. CHLORAMBUCIL [Suspect]
     Active Substance: CHLORAMBUCIL
     Indication: CHRONIC LYMPHOCYTIC LEUKAEMIA
     Dosage: ON DAY 1 OF THE CYCLE
     Route: 042
     Dates: start: 20151110
  11. RANITIDINE [Concomitant]
     Active Substance: RANITIDINE\RANITIDINE HYDROCHLORIDE
     Indication: PREMEDICATION
     Dosage: ON DAYS 1 AND 2, 8 AND 15 OF THE CYCLE
     Route: 040
     Dates: start: 20151110
  12. COTRIMOXAZOLE [Concomitant]
     Active Substance: SULFAMETHOXAZOLE\TRIMETHOPRIM
     Dosage: COTRIMOXAZOL FORTE
     Route: 048
  13. SODIUM CHLORIDE. [Concomitant]
     Active Substance: SODIUM CHLORIDE
     Indication: PREMEDICATION
     Route: 042
  14. GAZYVARO [Suspect]
     Active Substance: OBINUTUZUMAB
     Dosage: ON DAY 15 OF THE CYCLE
     Route: 042
     Dates: end: 20160203
  15. TAVEGIL [Concomitant]
     Active Substance: CLEMASTINE FUMARATE
     Indication: PREMEDICATION
     Dosage: ON DAYS 1 AND 2, 8 AND 15 OF THE CYCLE
     Route: 040
     Dates: start: 20151110
  16. LEUKERAN [Concomitant]
     Active Substance: CHLORAMBUCIL
     Dosage: ON DAY 1 AND DAY 15 OF THE CYCLE
     Route: 065

REACTIONS (3)
  - Blood lactate dehydrogenase increased [Recovered/Resolved]
  - Hepatic enzyme increased [Recovered/Resolved]
  - Blood alkaline phosphatase increased [Recovered/Resolved]

NARRATIVE: CASE EVENT DATE: 20151110
